FAERS Safety Report 8586258-6 (Version None)
Quarter: 2012Q3

REPORT INFORMATION
  Report Type: 
  Country: None (occurrence: None)
  Receive Date: 20120810
  Receipt Date: 20120803
  Transmission Date: 20120928
  Serious: Yes (Hospitalization, Other)
  Sender: FDA-Public Use
  Company Number: TR-AMGEN-TURSP2012007463

PATIENT
  Age: 46 Year
  Sex: Female

DRUGS (1)
  1. ENBREL [Suspect]
     Indication: ANKYLOSING SPONDYLITIS
     Dosage: 50 MG, WEEKLY
     Route: 058
     Dates: start: 20050701, end: 20120530

REACTIONS (7)
  - UTERINE CERVIX ULCER [None]
  - INJECTION SITE PAIN [None]
  - BLADDER PROLAPSE [None]
  - INTESTINAL PROLAPSE [None]
  - LUNG INFECTION [None]
  - INCONTINENCE [None]
  - URINARY TRACT INFECTION [None]
